FAERS Safety Report 10230946 (Version 1)
Quarter: 2014Q2

REPORT INFORMATION
  Report Type: Spontaneous
  Country: DK (occurrence: TR)
  Receive Date: 20140611
  Receipt Date: 20140611
  Transmission Date: 20141212
  Serious: Yes (Life-Threatening, Other)
  Sender: FDA-Public Use
  Company Number: TR-FRI-1000068013

PATIENT
  Age: 41 Year
  Sex: Male

DRUGS (8)
  1. ESCITALOPRAM [Suspect]
     Indication: DEPRESSION
     Route: 048
     Dates: start: 2013, end: 201405
  2. ESCITALOPRAM [Suspect]
     Dosage: OVERDOSE : UNKNOWN DOSE
     Dates: start: 20140526, end: 20140526
  3. SULPIR [Concomitant]
  4. SULPIR [Concomitant]
     Dosage: OVERDOSE : UNKNOWN DOSE
     Dates: start: 20140526, end: 20140526
  5. TEGRETOL [Concomitant]
     Route: 048
  6. TEGRETOL [Concomitant]
     Dosage: OVERDOSE : UNKNOWN DOSE
     Dates: start: 20140526, end: 20140526
  7. IRDA [Concomitant]
  8. IRDA [Concomitant]
     Dosage: OVERDOSE : UNKNOWN DOSE
     Dates: start: 20140526, end: 20140526

REACTIONS (5)
  - Suicide attempt [Recovering/Resolving]
  - Somnolence [Recovering/Resolving]
  - Gait disturbance [Recovering/Resolving]
  - Speech disorder [Recovering/Resolving]
  - Overdose [Recovered/Resolved]
